FAERS Safety Report 16261624 (Version 6)
Quarter: 2020Q3

REPORT INFORMATION
  Report Type: Spontaneous
  Country: US (occurrence: US)
  Receive Date: 20190501
  Receipt Date: 20200707
  Transmission Date: 20201102
  Serious: Yes (Hospitalization, Other)
  Sender: FDA-Public Use
  Company Number: US-LEXICON PHARMACEUTICALS, INC-19-1606-00452

PATIENT
  Age: 67 Year
  Sex: Male

DRUGS (4)
  1. XERMELO [Suspect]
     Active Substance: TELOTRISTAT ETHYL
     Indication: CARCINOID SYNDROME
     Route: 048
     Dates: start: 20181231
  2. XERMELO [Suspect]
     Active Substance: TELOTRISTAT ETHYL
     Dates: end: 20200701
  3. XERMELO [Suspect]
     Active Substance: TELOTRISTAT ETHYL
  4. XERMELO [Suspect]
     Active Substance: TELOTRISTAT ETHYL
     Dates: start: 20190601

REACTIONS (5)
  - Constipation [Unknown]
  - Product dose omission issue [Recovered/Resolved]
  - Large intestinal stenosis [Unknown]
  - Surgery [Unknown]
  - Drug ineffective [Unknown]
